FAERS Safety Report 7786501-7 (Version None)
Quarter: 2011Q3

REPORT INFORMATION
  Report Type: 
  Country: None (occurrence: None)
  Receive Date: 20110929
  Receipt Date: 20110923
  Transmission Date: 20111222
  Serious: Yes (Hospitalization)
  Sender: FDA-Public Use
  Company Number: US-GLAXOSMITHKLINE-A0844821A

PATIENT
  Age: 78 Year
  Sex: Male
  Weight: 71.4 kg

DRUGS (2)
  1. DIGOXIN [Concomitant]
  2. AVANDIA [Suspect]
     Indication: TYPE 2 DIABETES MELLITUS
     Dosage: 4MG TWICE PER DAY
     Route: 048
     Dates: start: 20031101, end: 20070101

REACTIONS (12)
  - LOSS OF CONSCIOUSNESS [None]
  - ATRIAL FIBRILLATION [None]
  - SICK SINUS SYNDROME [None]
  - BLOOD PRESSURE ABNORMAL [None]
  - CARDIAC FAILURE CONGESTIVE [None]
  - GAIT DISTURBANCE [None]
  - MYOCARDIAL INFARCTION [None]
  - RENAL DISORDER [None]
  - ARRHYTHMIA [None]
  - BALANCE DISORDER [None]
  - THYROID DISORDER [None]
  - LIVER DISORDER [None]
